FAERS Safety Report 4960812-2 (Version None)
Quarter: 2006Q1

REPORT INFORMATION
  Report Type: 
  Country: None (occurrence: None)
  Receive Date: 20060331
  Receipt Date: 20060331
  Transmission Date: 20060701
  Serious: Yes (Hospitalization)
  Sender: FDA-Public Use
  Company Number: None

PATIENT
  Sex: Female
  Weight: 85.2762 kg

DRUGS (19)
  1. TAXOTERE [Suspect]
     Indication: NON-SMALL CELL LUNG CANCER
     Dosage: 140 MG X1 IV
     Route: 042
     Dates: start: 20060313, end: 20060313
  2. CARBOPLATIN [Suspect]
     Indication: NON-SMALL CELL LUNG CANCER
     Dosage: 640 MG X1 IV
     Route: 042
     Dates: start: 20060313, end: 20060313
  3. MAGNESIUM OXIDE [Concomitant]
  4. LIDOCAINE HCL VISCOUS [Concomitant]
  5. MIRACLE MOUTHWASH [Concomitant]
  6. PHENERGAN HCL [Concomitant]
  7. MS04 [Concomitant]
  8. SENOKOT [Concomitant]
  9. TRAMADOL HCL [Concomitant]
  10. XOPENEX [Concomitant]
  11. TESSLON PERLES [Concomitant]
  12. ASPIRIN [Concomitant]
  13. AMBIEN [Concomitant]
  14. NEXIUM [Concomitant]
  15. CELEBREX [Concomitant]
  16. ALLEGRA [Concomitant]
  17. PROZAC [Concomitant]
  18. CENTRUM SILVER [Concomitant]
  19. PLAVIX [Concomitant]

REACTIONS (4)
  - BLOOD PRESSURE DECREASED [None]
  - BLOOD TEST ABNORMAL [None]
  - DYSPNOEA [None]
  - FATIGUE [None]
